FAERS Safety Report 25444652 (Version 1)
Quarter: 2025Q2

REPORT INFORMATION
  Report Type: Spontaneous
  Country: DK (occurrence: DK)
  Receive Date: 20250617
  Receipt Date: 20250617
  Transmission Date: 20250717
  Serious: Yes (Congenital Anomaly, Other)
  Sender: TAKEDA
  Company Number: None

PATIENT

DRUGS (1)
  1. LISDEXAMFETAMINE DIMESYLATE [Suspect]
     Active Substance: LISDEXAMFETAMINE DIMESYLATE
     Indication: Attention deficit hyperactivity disorder
     Dosage: 40 MILLIGRAM, QD
     Route: 064
     Dates: start: 2024

REACTIONS (5)
  - Ventricular septal defect [Unknown]
  - Cardiac septal hypertrophy [Unknown]
  - Persistent left superior vena cava [Unknown]
  - Heart disease congenital [Unknown]
  - Foetal exposure during pregnancy [Not Recovered/Not Resolved]

NARRATIVE: CASE EVENT DATE: 20250101
